FAERS Safety Report 7805354-1 (Version None)
Quarter: 2011Q4

REPORT INFORMATION
  Report Type: 
  Country: None (occurrence: None)
  Receive Date: 20111010
  Receipt Date: 20110930
  Transmission Date: 20120403
  Serious: No
  Sender: FDA-Public Use
  Company Number: JP-ABBOTT-11P-087-0733106-00

PATIENT
  Sex: Male
  Weight: 50.8 kg

DRUGS (8)
  1. HUMIRA [Suspect]
     Dates: start: 20101125, end: 20101125
  2. ENTERAL NUTRITION [Concomitant]
     Indication: PRODUCT USED FOR UNKNOWN INDICATION
  3. AZATHIOPRINE [Concomitant]
     Indication: PRODUCT USED FOR UNKNOWN INDICATION
     Route: 048
  4. BEPOTASTINE BESILATE [Concomitant]
     Indication: RHINITIS ALLERGIC
     Route: 048
  5. HUMIRA [Suspect]
     Dates: start: 20101209
  6. HUMIRA [Suspect]
     Indication: CROHN'S DISEASE
     Dates: start: 20101109, end: 20101109
  7. PREDNISOLONE [Concomitant]
     Indication: PRODUCT USED FOR UNKNOWN INDICATION
     Route: 048
  8. MESALAMINE [Concomitant]
     Indication: CROHN'S DISEASE
     Route: 048

REACTIONS (4)
  - PAPULE [None]
  - ARTHRALGIA [None]
  - VARICELLA [None]
  - PYREXIA [None]
